FAERS Safety Report 15884070 (Version 2)
Quarter: 2019Q1

REPORT INFORMATION
  Report Type: Spontaneous
  Country: TR (occurrence: TR)
  Receive Date: 20190129
  Receipt Date: 20190215
  Transmission Date: 20190417
  Serious: Yes (Disabling, Other)
  Sender: FDA-Public Use
  Company Number: TR-BAUSCH-BL-2019-002387

PATIENT
  Sex: Male

DRUGS (1)
  1. NIBULEN [Suspect]
     Active Substance: CICLOPIROX OLAMINE
     Indication: FUNGAL INFECTION
     Route: 065

REACTIONS (2)
  - Tympanic membrane perforation [Not Recovered/Not Resolved]
  - Deafness [Unknown]
